FAERS Safety Report 5577778-7 (Version None)
Quarter: 2007Q4

REPORT INFORMATION
  Report Type: 
  Country: None (occurrence: None)
  Receive Date: 20071231
  Receipt Date: 20071228
  Transmission Date: 20080405
  Serious: Yes (Hospitalization)
  Sender: FDA-Public Use
  Company Number: IT-BRISTOL-MYERS SQUIBB COMPANY-14027056

PATIENT
  Sex: Female

DRUGS (1)
  1. CARBOPLATIN [Suspect]

REACTIONS (5)
  - CONFUSIONAL STATE [None]
  - DYSPNOEA [None]
  - OEDEMA PERIPHERAL [None]
  - PARAESTHESIA [None]
  - VOMITING [None]
